FAERS Safety Report 21389984 (Version 1)
Quarter: 2022Q3

REPORT INFORMATION
  Report Type: Spontaneous
  Country: US (occurrence: None)
  Receive Date: 20220927
  Receipt Date: 20220927
  Transmission Date: 20221026
  Serious: No
  Sender: FDA-Public Use
  Company Number: None

PATIENT
  Age: 83 Year
  Sex: Female
  Weight: 71.21 kg

DRUGS (9)
  1. IBRANCE [Suspect]
     Active Substance: PALBOCICLIB
     Indication: Mixed hepatocellular cholangiocarcinoma
     Dosage: OTHER FREQUENCY : 3W ON 1W OFF;?
     Route: 048
  2. JANUVIA [Concomitant]
     Active Substance: SITAGLIPTIN PHOSPHATE
  3. LETROZOLE [Concomitant]
     Active Substance: LETROZOLE
  4. VITAMINS [Concomitant]
     Active Substance: VITAMINS
  5. OYSCO [Concomitant]
  6. PANTOPRAZOLE [Concomitant]
     Active Substance: PANTOPRAZOLE
  7. PIOGLITAZONE [Concomitant]
     Active Substance: PIOGLITAZONE
  8. PROBIOTICS NOS [Concomitant]
     Active Substance: PROBIOTICS NOS
  9. SENNA [Concomitant]
     Active Substance: SENNA LEAF\SENNOSIDES\SENNOSIDES A AND B

REACTIONS (2)
  - Neoplasm malignant [None]
  - Laboratory test abnormal [None]
